FAERS Safety Report 8484749 (Version 4)
Quarter: 2012Q4

REPORT INFORMATION
  Report Type: Report from Study
  Country: SE (occurrence: SE)
  Receive Date: 20120330
  Receipt Date: 20120920
  Transmission Date: 20130627
  Serious: Yes (Hospitalization)
  Sender: FDA-Public Use
  Company Number: SE-NAPPMUNDI-GBR-2012-0010101

PATIENT
  Age: 75 Year
  Sex: Male
  Weight: 68 kg

DRUGS (7)
  1. BUPRENORPHINE [Suspect]
     Indication: OSTEOARTHRITIS
     Dosage: 10 mcg, q1h
     Route: 062
     Dates: start: 20120313, end: 20120322
  2. BUPRENORPHINE [Suspect]
     Dosage: 10 mcg, q1h
     Route: 062
     Dates: start: 20120306, end: 20120313
  3. BUPRENORPHINE [Suspect]
     Dosage: 5 mcg, q1h
     Route: 062
     Dates: start: 20120227, end: 20120306
  4. BUPRENORPHINE [Suspect]
     Dosage: 5 mcg, q1h
     Route: 062
     Dates: start: 20120221, end: 20120227
  5. IMDUR [Concomitant]
     Indication: ANGINA PECTORIS
     Dosage: 30 mg, daily
     Route: 048
     Dates: start: 2001
  6. LOSARTAN [Concomitant]
     Indication: HYPERTENSION
     Dosage: 50 mg, daily
     Route: 048
     Dates: start: 2011
  7. OMEPRAZOL                          /00661201/ [Concomitant]
     Indication: REFLUX GASTRITIS

REACTIONS (2)
  - Cholelithiasis [Recovered/Resolved]
  - Pancreatitis acute [Recovered/Resolved]
